FAERS Safety Report 20976213 (Version 2)
Quarter: 2022Q2

REPORT INFORMATION
  Report Type: Spontaneous
  Country: US (occurrence: US)
  Receive Date: 20220617
  Receipt Date: 20220620
  Transmission Date: 20220721
  Serious: No
  Sender: FDA-Public Use
  Company Number: US-PFIZER INC-202200845536

PATIENT
  Age: 63 Year
  Sex: Female
  Weight: 71.21 kg

DRUGS (1)
  1. PAXLOVID [Suspect]
     Active Substance: NIRMATRELVIR\RITONAVIR
     Indication: COVID-19 treatment
     Dosage: 3 DF (2 TABLETS NIRMATRELVIR AND 1 RITONAVIR TABLET, 1 DOSE IN THE MORNING AND 1 DOSE AT NIGHT )
     Dates: start: 20220608, end: 20220614

REACTIONS (2)
  - Dysgeusia [Unknown]
  - Incorrect product administration duration [Unknown]

NARRATIVE: CASE EVENT DATE: 20220608
